FAERS Safety Report 9735794 (Version 3)
Quarter: 2015Q3

REPORT INFORMATION
  Report Type: Spontaneous
  Country: US (occurrence: US)
  Receive Date: 20131206
  Receipt Date: 20150804
  Transmission Date: 20151125
  Serious: No
  Sender: FDA-Public Use
  Company Number: US-GILEAD-2009-0022673

PATIENT
  Age: 71 Year
  Sex: Female

DRUGS (9)
  1. NORVASC [Concomitant]
     Active Substance: AMLODIPINE BESYLATE
  2. ESTER-C [Concomitant]
     Active Substance: CALCIUM\VITAMINS
  3. ADULT ASPIRIN [Concomitant]
  4. METHOTREXATE [Concomitant]
     Active Substance: METHOTREXATE
  5. LETAIRIS [Suspect]
     Active Substance: AMBRISENTAN
     Indication: PULMONARY ARTERIAL HYPERTENSION
     Route: 048
     Dates: start: 20080724
  6. LISINOPRIL. [Concomitant]
     Active Substance: LISINOPRIL
  7. ZANTAC [Concomitant]
     Active Substance: RANITIDINE HYDROCHLORIDE
  8. PRAVASTATIN SODIUM. [Concomitant]
     Active Substance: PRAVASTATIN SODIUM
  9. IBUPROFEN. [Concomitant]
     Active Substance: IBUPROFEN

REACTIONS (1)
  - Liver function test abnormal [Unknown]
